FAERS Safety Report 9189884 (Version 1)
Quarter: 2013Q1

REPORT INFORMATION
  Report Type: Spontaneous
  Country: US (occurrence: None)
  Receive Date: 20130322
  Receipt Date: 20130322
  Transmission Date: 20140127
  Serious: Yes (Other)
  Sender: FDA-Public Use
  Company Number: None

PATIENT
  Age: 66 Year
  Sex: Male
  Weight: 100.7 kg

DRUGS (1)
  1. AMOXICILLIN + CLAVULANIC ACID [Suspect]
     Dosage: 1 EVERY 12 HOURS PO
     Route: 048
     Dates: start: 20090312, end: 20130313

REACTIONS (2)
  - Product substitution issue [None]
  - Drug ineffective [None]
